FAERS Safety Report 6975059-8 (Version None)
Quarter: 2010Q3

REPORT INFORMATION
  Report Type: 
  Country: None (occurrence: None)
  Receive Date: 20100910
  Receipt Date: 20090203
  Transmission Date: 20110219
  Serious: No
  Sender: FDA-Public Use
  Company Number: US-WYE-H08053409

PATIENT
  Sex: Male
  Weight: 64.47 kg

DRUGS (5)
  1. PRISTIQ [Suspect]
     Indication: ANXIETY
     Route: 048
     Dates: start: 20090202
  2. PRISTIQ [Suspect]
     Indication: DEPRESSION
  3. DIOVAN [Concomitant]
  4. CLOPIDOGREL BISULFATE [Concomitant]
  5. LORAZEPAM [Concomitant]

REACTIONS (2)
  - CONDITION AGGRAVATED [None]
  - INSOMNIA [None]
